FAERS Safety Report 8512564-7 (Version None)
Quarter: 2012Q3

REPORT INFORMATION
  Report Type: 
  Country: None (occurrence: None)
  Receive Date: 20120716
  Receipt Date: 20120704
  Transmission Date: 20120928
  Serious: Yes (Hospitalization)
  Sender: FDA-Public Use
  Company Number: AT-ROCHE-1064157

PATIENT
  Age: 47 Year
  Sex: Female
  Weight: 71.3 kg

DRUGS (4)
  1. VEMURAFENIB [Suspect]
     Indication: METASTATIC MALIGNANT MELANOMA
     Route: 048
     Dates: start: 20120402, end: 20120426
  2. VEMURAFENIB [Suspect]
     Route: 048
     Dates: start: 20120429
  3. FRAGMIN [Concomitant]
     Dosage: 5000/UNIT
     Dates: start: 20120403
  4. VOLTAREN [Concomitant]
     Dates: start: 20120323

REACTIONS (1)
  - ANAEMIA [None]
